FAERS Safety Report 20910791 (Version 1)
Quarter: 2022Q2

REPORT INFORMATION
  Report Type: Spontaneous
  Country: DE (occurrence: DE)
  Receive Date: 20220603
  Receipt Date: 20220603
  Transmission Date: 20220721
  Serious: Yes (Hospitalization, Other)
  Sender: FDA-Public Use
  Company Number: DE-002147023-NVSC2022DE113121

PATIENT
  Sex: Female

DRUGS (7)
  1. LETROZOLE [Suspect]
     Active Substance: LETROZOLE
     Indication: Breast cancer metastatic
     Dosage: 2.5 MILLIGRAM, QD (2.5 MG, QD)
     Route: 065
     Dates: start: 2020, end: 202201
  2. LETROZOLE [Suspect]
     Active Substance: LETROZOLE
     Dosage: 2.5 MILLIGRAM, QD (2.5 MG, QD (FROM 2022))
     Route: 065
     Dates: start: 2022
  3. DENOSUMAB [Suspect]
     Active Substance: DENOSUMAB
     Indication: Breast cancer metastatic
     Dosage: 120 MILLIGRAM, Q28D (120 MG, Q4W)
     Route: 058
     Dates: start: 2020, end: 202201
  4. DENOSUMAB [Suspect]
     Active Substance: DENOSUMAB
     Dosage: 120 MILLIGRAM, Q28D (120 MG, Q4W (FROM 2022))
     Route: 058
     Dates: start: 2022
  5. RIBOCICLIB [Suspect]
     Active Substance: RIBOCICLIB
     Indication: Breast cancer metastatic
     Dosage: 600 MILLIGRAM, QD (600 MG, DAILY ON D1 TO D21)
     Route: 065
     Dates: start: 2020, end: 2020
  6. RIBOCICLIB [Suspect]
     Active Substance: RIBOCICLIB
     Dosage: 400 MILLIGRAM (400 MG)
     Route: 065
     Dates: start: 2020, end: 202201
  7. RIBOCICLIB [Suspect]
     Active Substance: RIBOCICLIB
     Dosage: 400 MILLIGRAM (400 MG (FROM 2022))
     Route: 065
     Dates: start: 2022

REACTIONS (11)
  - General physical health deterioration [Unknown]
  - Febrile infection [Unknown]
  - Diarrhoea haemorrhagic [Unknown]
  - Diverticulum [Unknown]
  - SARS-CoV-2 test positive [Unknown]
  - Colitis [Unknown]
  - Necrosis [Unknown]
  - Superinfection bacterial [Recovered/Resolved]
  - Neutropenia [Unknown]
  - Diarrhoea [Unknown]
  - Impaired healing [Recovered/Resolved]

NARRATIVE: CASE EVENT DATE: 20200101
